FAERS Safety Report 9004381 (Version 1)
Quarter: 2013Q1

REPORT INFORMATION
  Report Type: Spontaneous
  Country: US (occurrence: None)
  Receive Date: 20130104
  Receipt Date: 20130104
  Transmission Date: 20140127
  Serious: No
  Sender: FDA-Public Use
  Company Number: None

PATIENT
  Sex: Female
  Weight: 20.5 kg

DRUGS (1)
  1. CONCERTA [Suspect]
     Dosage: 18 MG/#30 1 QD ORAL
     Route: 048
     Dates: start: 20121107, end: 20121207

REACTIONS (1)
  - Drug ineffective [None]
